FAERS Safety Report 25267306 (Version 1)
Quarter: 2025Q2

REPORT INFORMATION
  Report Type: Report from Study
  Country: GR (occurrence: GR)
  Receive Date: 20250505
  Receipt Date: 20250505
  Transmission Date: 20250717
  Serious: Yes (Hospitalization)
  Sender: AMGEN
  Company Number: GR-ROCHE-10000261974

PATIENT

DRUGS (7)
  1. TRASTUZUMAB [Suspect]
     Active Substance: TRASTUZUMAB
     Indication: Neoplasm malignant
     Dosage: 348 MILLIGRAM, Q3WK (DATE OF MOST RECENT DOSE PRIOR TO AE: 19-SEP-2024DOSE OF LAST PRIOR TO AE: 348
     Route: 040
     Dates: start: 20240229
  2. BEVACIZUMAB [Concomitant]
     Active Substance: BEVACIZUMAB
     Dates: start: 20230111
  3. TRASTUZUMAB DERUXTECAN [Concomitant]
     Active Substance: TRASTUZUMAB DERUXTECAN
     Dates: start: 20250115
  4. GEMCITABINE [Concomitant]
     Active Substance: GEMCITABINE
     Dates: start: 20240201
  5. DOXORUBICIN [Concomitant]
     Active Substance: DOXORUBICIN
     Dates: start: 20230405
  6. PACLITAXEL [Concomitant]
     Active Substance: PACLITAXEL
     Dates: start: 20230111
  7. CARBOPLATIN [Concomitant]
     Active Substance: CARBOPLATIN
     Dates: start: 20230111

REACTIONS (1)
  - Supraventricular tachycardia [Recovered/Resolved]

NARRATIVE: CASE EVENT DATE: 20241001
